FAERS Safety Report 7814721-1 (Version None)
Quarter: 2011Q4

REPORT INFORMATION
  Report Type: 
  Country: None (occurrence: None)
  Receive Date: 20111013
  Receipt Date: 20111013
  Transmission Date: 20120403
  Serious: Yes (Hospitalization, Other)
  Sender: FDA-Public Use
  Company Number: None

PATIENT
  Sex: Female
  Weight: 54.4316 kg

DRUGS (1)
  1. TRAZODONE HYDROCHLORIDE [Suspect]
     Indication: BIPOLAR DISORDER
     Dosage: ONE TABLET DAILY DAILY ORAL 047
     Route: 048
     Dates: start: 20110421, end: 20110601

REACTIONS (2)
  - CARDIAC DISORDER [None]
  - PALPITATIONS [None]
